FAERS Safety Report 17040853 (Version 20)
Quarter: 2025Q3

REPORT INFORMATION
  Report Type: Report from Study
  Country: CA (occurrence: CA)
  Receive Date: 20191118
  Receipt Date: 20250915
  Transmission Date: 20251020
  Serious: Yes (Hospitalization, Other)
  Sender: ROCHE
  Company Number: CA-002147023-NVSC2019CA034013

PATIENT
  Age: 8 Year
  Sex: Female

DRUGS (16)
  1. XOLAIR [Suspect]
     Active Substance: OMALIZUMAB
     Indication: Asthma
     Dosage: 375 MG, BIW
     Route: 058
     Dates: start: 20191103
  2. XOLAIR [Suspect]
     Active Substance: OMALIZUMAB
     Dosage: 375 MG, BIW
     Route: 058
     Dates: start: 20210408
  3. XOLAIR [Suspect]
     Active Substance: OMALIZUMAB
     Dosage: 375 MG, BIW
     Route: 058
  4. XOLAIR [Suspect]
     Active Substance: OMALIZUMAB
     Route: 058
     Dates: start: 20220510
  5. XOLAIR [Suspect]
     Active Substance: OMALIZUMAB
     Dosage: 375 MG, BIW
     Route: 058
  6. XOLAIR [Suspect]
     Active Substance: OMALIZUMAB
     Dosage: 375 MG, BIW
     Route: 058
     Dates: start: 20220621
  7. XOLAIR [Suspect]
     Active Substance: OMALIZUMAB
     Route: 065
     Dates: start: 20231024
  8. SYMBICORT [Concomitant]
     Active Substance: BUDESONIDE\FORMOTEROL FUMARATE DIHYDRATE
     Indication: Product used for unknown indication
     Dosage: 2 DOSAGE FORM, BID
     Route: 055
  9. SINGULAIR [Concomitant]
     Active Substance: MONTELUKAST SODIUM
     Indication: Product used for unknown indication
     Dosage: 1 DOSAGE FORM, QD
     Route: 048
  10. BRICANYL [Concomitant]
     Active Substance: TERBUTALINE SULFATE
     Indication: Product used for unknown indication
     Route: 055
  11. FLUTICASONE FUROATE [Concomitant]
     Active Substance: FLUTICASONE FUROATE
     Indication: Product used for unknown indication
     Dosage: 2 DOSAGE FORM, QD
     Route: 045
  12. RUPATADINE FUMARATE [Concomitant]
     Active Substance: RUPATADINE FUMARATE
     Indication: Product used for unknown indication
     Dosage: 10 MG, QD
     Route: 048
  13. ALBUTEROL SULFATE [Concomitant]
     Active Substance: ALBUTEROL SULFATE
     Indication: Product used for unknown indication
     Route: 055
  14. EPIPEN [Concomitant]
     Active Substance: EPINEPHRINE
     Indication: Product used for unknown indication
     Route: 030
  15. MAXILENE CREAM [Concomitant]
     Indication: Product used for unknown indication
  16. VENTOLIN [Concomitant]
     Active Substance: ALBUTEROL SULFATE
     Indication: Product used for unknown indication

REACTIONS (30)
  - Presyncope [Unknown]
  - Sepsis [Unknown]
  - Pyelonephritis [Unknown]
  - Kidney infection [Unknown]
  - Illness [Unknown]
  - Attention deficit hyperactivity disorder [Unknown]
  - Anxiety [Unknown]
  - Paraesthesia [Unknown]
  - Nasal congestion [Recovering/Resolving]
  - SARS-CoV-2 test positive [Unknown]
  - Middle insomnia [Unknown]
  - Throat clearing [Unknown]
  - Frustration tolerance decreased [Unknown]
  - Sensitivity to weather change [Unknown]
  - Fear [Unknown]
  - Perfume sensitivity [Unknown]
  - Fear of injection [Unknown]
  - Heart rate increased [Unknown]
  - Viral infection [Unknown]
  - Hypersensitivity [Unknown]
  - Urinary tract infection [Unknown]
  - Wheezing [Unknown]
  - Discomfort [Unknown]
  - Dyspnoea [Unknown]
  - Chest discomfort [Unknown]
  - Asthma [Unknown]
  - Pyrexia [Unknown]
  - Cough [Unknown]
  - Inappropriate schedule of product administration [Unknown]
  - Weight increased [Unknown]

NARRATIVE: CASE EVENT DATE: 20191103
